FAERS Safety Report 25460123 (Version 2)
Quarter: 2025Q3

REPORT INFORMATION
  Report Type: Spontaneous
  Country: EU (occurrence: EU)
  Receive Date: 20250620
  Receipt Date: 20250801
  Transmission Date: 20251020
  Serious: Yes (Other)
  Sender: TEVA
  Company Number: EU-TEVA-VS-3342722

PATIENT
  Age: 51 Year
  Sex: Female

DRUGS (6)
  1. AJOVY [Suspect]
     Active Substance: FREMANEZUMAB-VFRM
     Indication: Migraine
     Route: 065
     Dates: start: 20240719
  2. AJOVY [Suspect]
     Active Substance: FREMANEZUMAB-VFRM
     Indication: Migraine
     Route: 065
     Dates: start: 20240827
  3. AJOVY [Suspect]
     Active Substance: FREMANEZUMAB-VFRM
     Indication: Migraine
     Route: 065
     Dates: start: 20240914
  4. AJOVY [Suspect]
     Active Substance: FREMANEZUMAB-VFRM
     Indication: Migraine
     Route: 065
     Dates: start: 20241015
  5. AJOVY [Suspect]
     Active Substance: FREMANEZUMAB-VFRM
     Indication: Migraine
     Route: 065
     Dates: start: 20241120
  6. AJOVY [Suspect]
     Active Substance: FREMANEZUMAB-VFRM
     Indication: Migraine
     Route: 065
     Dates: start: 20241213, end: 20241213

REACTIONS (6)
  - Skin necrosis [Recovering/Resolving]
  - Pneumonia [Unknown]
  - Liposuction [Unknown]
  - Inappropriate schedule of product administration [Unknown]
  - Abdominoplasty [Unknown]
  - Postoperative wound complication [Recovering/Resolving]

NARRATIVE: CASE EVENT DATE: 20240101
